FAERS Safety Report 9749927 (Version 1)
Quarter: 2013Q4

REPORT INFORMATION
  Report Type: Spontaneous
  Country: US (occurrence: US)
  Receive Date: 20131212
  Receipt Date: 20131212
  Transmission Date: 20140711
  Serious: Yes (Other)
  Sender: FDA-Public Use
  Company Number: US-PFIZER INC-2013355671

PATIENT
  Age: 43 Year
  Sex: Female
  Weight: 124 kg

DRUGS (3)
  1. ARTHROTEC [Suspect]
     Indication: INFLAMMATION
     Dosage: 200 MCG OF MISOPROSTOL/ 75 MG OF DICLOFENAC SODIUM, 3X/DAY
     Dates: start: 2000
  2. HYDROCODONE W/ACETAMINOPHEN [Concomitant]
     Indication: PAIN IN EXTREMITY
     Dosage: 75 MG, EVERY 4 TO 6 HOURS
  3. HYDROCODONE W/ACETAMINOPHEN [Concomitant]
     Dosage: 10 MG OF HYDROCODONE/325 MG OF ACETAMINOPHEN, EVERY 4 TO 6 HOURS

REACTIONS (1)
  - Back disorder [Unknown]
